FAERS Safety Report 5145702-7 (Version None)
Quarter: 2006Q4

REPORT INFORMATION
  Report Type: 
  Country: None (occurrence: None)
  Receive Date: 20061102
  Receipt Date: 20061023
  Transmission Date: 20070319
  Serious: Yes (Other)
  Sender: FDA-Public Use
  Company Number: 06H-087-0308296-00

PATIENT
  Age: 68 Year
  Sex: Male

DRUGS (2)
  1. PRECEDEX [Suspect]
     Indication: SEDATION
     Dosage: INTRAVENOUS
     Route: 042
     Dates: start: 20060522
  2. PROPOFOL [Concomitant]

REACTIONS (5)
  - BLOOD PRESSURE INCREASED [None]
  - CEREBRAL INFARCTION [None]
  - CLONIC CONVULSION [None]
  - PROCEDURAL COMPLICATION [None]
  - PROCEDURAL PAIN [None]
